FAERS Safety Report 5165674-9 (Version None)
Quarter: 2006Q4

REPORT INFORMATION
  Report Type: 
  Country: None (occurrence: None)
  Receive Date: 20061206
  Receipt Date: 20061031
  Transmission Date: 20070319
  Serious: Yes (Hospitalization)
  Sender: FDA-Public Use
  Company Number: ES-BRISTOL-MYERS SQUIBB COMPANY-13561832

PATIENT
  Age: 80 Year
  Sex: Male
  Weight: 56 kg

DRUGS (10)
  1. TAXOL [Suspect]
     Indication: NON-SMALL CELL LUNG CANCER
     Route: 042
     Dates: start: 20060927
  2. CARBOPLATIN [Suspect]
     Indication: NON-SMALL CELL LUNG CANCER
     Route: 042
     Dates: start: 20060927
  3. PF-3512676 [Suspect]
     Indication: NON-SMALL CELL LUNG CANCER
     Route: 058
     Dates: start: 20061004
  4. SYMBICORT [Concomitant]
     Dates: start: 20060918
  5. OXYGEN [Concomitant]
     Route: 045
     Dates: start: 20060918
  6. SPIRIVA [Concomitant]
     Route: 055
     Dates: start: 20060918
  7. PREDNISONE TAB [Concomitant]
     Route: 048
     Dates: start: 20060918
  8. ASPIRIN [Concomitant]
     Route: 048
     Dates: start: 20060918
  9. PAROXETINE HCL [Concomitant]
     Route: 048
     Dates: start: 20060918
  10. ACETYLCYSTEINE [Concomitant]
     Route: 048
     Dates: start: 20060918

REACTIONS (8)
  - ATRIAL FIBRILLATION [None]
  - ELECTROCARDIOGRAM ABNORMAL [None]
  - FEBRILE NEUTROPENIA [None]
  - NEUTROPENIA [None]
  - PSEUDOMONAL BACTERAEMIA [None]
  - PYREXIA [None]
  - RESPIRATORY TRACT INFECTION [None]
  - TACHYCARDIA [None]
